FAERS Safety Report 25716982 (Version 1)
Quarter: 2025Q3

REPORT INFORMATION
  Report Type: Spontaneous
  Country: US (occurrence: US)
  Receive Date: 20250822
  Receipt Date: 20250822
  Transmission Date: 20251020
  Serious: No
  Sender: SANOFI AVENTIS
  Company Number: US-SA-2025SA244487

PATIENT
  Age: 39 Year
  Sex: Female
  Weight: 57.596 kg

DRUGS (11)
  1. DUPIXENT [Suspect]
     Active Substance: DUPILUMAB
     Indication: Dermatitis atopic
     Route: 058
     Dates: start: 20250803
  2. ELIDEL [Concomitant]
     Active Substance: PIMECROLIMUS
     Dates: start: 20240906
  3. METFORMIN [Concomitant]
     Active Substance: METFORMIN HYDROCHLORIDE
     Dates: start: 20240906
  4. MINOCYCLINE [Concomitant]
     Active Substance: MINOCYCLINE HYDROCHLORIDE
     Dates: start: 20240906
  5. VITAMINS [Concomitant]
     Active Substance: VITAMINS
     Dates: start: 20240906
  6. SPIRONOLACTONE [Concomitant]
     Active Substance: SPIRONOLACTONE
     Dates: start: 20240906
  7. TRETINOIN [Concomitant]
     Active Substance: TRETINOIN
     Dates: start: 20240906
  8. TRIAMCINOLONE [Concomitant]
     Active Substance: TRIAMCINOLONE
     Dates: start: 20240906
  9. ADAPALENE [Concomitant]
     Active Substance: ADAPALENE
     Dates: start: 20240906
  10. AZELAIC ACID [Concomitant]
     Active Substance: AZELAIC ACID
     Dates: start: 20240906
  11. CLINDAMYCIN [Concomitant]
     Active Substance: CLINDAMYCIN
     Dates: start: 20240906

REACTIONS (1)
  - Urticaria [Recovering/Resolving]

NARRATIVE: CASE EVENT DATE: 20250810
